FAERS Safety Report 9447833 (Version 1)
Quarter: 2013Q3

REPORT INFORMATION
  Report Type: Report from Study
  Country: US (occurrence: US)
  Receive Date: 20130808
  Receipt Date: 20130808
  Transmission Date: 20140515
  Serious: Yes (Hospitalization)
  Sender: FDA-Public Use
  Company Number: US-SANOFI-AVENTIS-2013SA079146

PATIENT
  Sex: Female

DRUGS (2)
  1. AUBAGIO [Suspect]
     Dosage: THERAPY STOP DATE: SEVERAL MONTHS AGO
     Route: 048
     Dates: start: 20130215
  2. ALL OTHER THERAPEUTIC PRODUCTS [Concomitant]
     Route: 065

REACTIONS (2)
  - Multiple sclerosis relapse [Unknown]
  - Alopecia [Unknown]
